FAERS Safety Report 8871188 (Version 2)
Quarter: 2013Q1

REPORT INFORMATION
  Report Type: Report from Study
  Country: US (occurrence: US)
  Receive Date: 20121029
  Receipt Date: 20130213
  Transmission Date: 20140127
  Serious: Yes (Hospitalization)
  Sender: FDA-Public Use
  Company Number: US-ROCHE-1149817

PATIENT
  Age: 56 Year
  Sex: Female
  Weight: 72.64 kg

DRUGS (3)
  1. HERCEPTIN [Suspect]
     Indication: BREAST CANCER
     Route: 042
     Dates: start: 201207, end: 20121004
  2. COUMADIN [Concomitant]
     Route: 048
  3. COUMADIN [Concomitant]
     Route: 058

REACTIONS (1)
  - Pulmonary embolism [Recovered/Resolved]
